FAERS Safety Report 16112421 (Version 2)
Quarter: 2019Q2

REPORT INFORMATION
  Report Type: Report from Study
  Country: US (occurrence: US)
  Receive Date: 20190325
  Receipt Date: 20190425
  Transmission Date: 20190711
  Serious: Yes (Death)
  Sender: FDA-Public Use
  Company Number: US-EXELIXIS-CABO-19019534

PATIENT
  Age: 81 Year
  Sex: Male

DRUGS (1)
  1. CABOMETYX [Suspect]
     Active Substance: CABOZANTINIB S-MALATE
     Indication: RENAL CANCER
     Dosage: 20 MG, QD ON EMPTY STOMACH IN AM
     Route: 048
     Dates: start: 2018

REACTIONS (1)
  - Death [Fatal]

NARRATIVE: CASE EVENT DATE: 20190310
